FAERS Safety Report 21721696 (Version 2)
Quarter: 2023Q1

REPORT INFORMATION
  Report Type: Report from Study
  Country: US (occurrence: US)
  Receive Date: 20221213
  Receipt Date: 20230106
  Transmission Date: 20230418
  Serious: No
  Sender: FDA-Public Use
  Company Number: US-SA-SAC20221212000170

PATIENT
  Age: 16 Year
  Sex: Female

DRUGS (3)
  1. DUPILUMAB [Suspect]
     Active Substance: DUPILUMAB
     Indication: Dermatitis atopic
     Dosage: 400 MG, 1X
     Route: 058
     Dates: start: 20220915, end: 20220915
  2. DUPILUMAB [Suspect]
     Active Substance: DUPILUMAB
     Dosage: 200 MG, QOW
     Route: 058
     Dates: start: 2022
  3. DUPILUMAB [Suspect]
     Active Substance: DUPILUMAB
     Dosage: 200 MG FREQUENCY: OTHER
     Route: 058

REACTIONS (9)
  - Bone pain [Not Recovered/Not Resolved]
  - Joint noise [Unknown]
  - Dry skin [Unknown]
  - Skin swelling [Unknown]
  - Ocular hyperaemia [Unknown]
  - Rash erythematous [Unknown]
  - Dry eye [Unknown]
  - Conjunctivitis [Unknown]
  - Eye irritation [Not Recovered/Not Resolved]
